FAERS Safety Report 22245537 (Version 3)
Quarter: 2023Q2

REPORT INFORMATION
  Report Type: Report from Study
  Country: AE (occurrence: None)
  Receive Date: 20230424
  Receipt Date: 20230627
  Transmission Date: 20230722
  Serious: Yes (Hospitalization)
  Sender: FDA-Public Use
  Company Number: 2023A092958

PATIENT
  Age: 56 Year
  Sex: Female
  Weight: 63 kg

DRUGS (77)
  1. CILGAVIMAB\TIXAGEVIMAB [Suspect]
     Active Substance: CILGAVIMAB\TIXAGEVIMAB
     Indication: COVID-19 treatment
     Dosage: 3 ML ONCE/SINGLE ADMINISTRATION
     Route: 030
     Dates: start: 20220921
  2. ACETAMINOPHEN [Concomitant]
     Active Substance: ACETAMINOPHEN
     Indication: Acute myeloid leukaemia
     Route: 042
     Dates: start: 20230114, end: 20230114
  3. ACETAMINOPHEN [Concomitant]
     Active Substance: ACETAMINOPHEN
     Indication: Chest pain
     Route: 042
     Dates: start: 20230114, end: 20230114
  4. ACETAMINOPHEN [Concomitant]
     Active Substance: ACETAMINOPHEN
     Indication: Cough variant asthma
     Route: 042
     Dates: start: 20230114, end: 20230114
  5. ACETAMINOPHEN [Concomitant]
     Active Substance: ACETAMINOPHEN
     Indication: Dehydration
     Route: 042
     Dates: start: 20230114, end: 20230114
  6. ACETAMINOPHEN [Concomitant]
     Active Substance: ACETAMINOPHEN
     Indication: Pyrexia
     Route: 042
     Dates: start: 20230114, end: 20230114
  7. ACETAMINOPHEN [Concomitant]
     Active Substance: ACETAMINOPHEN
     Indication: Dyspepsia
     Route: 042
     Dates: start: 20230114, end: 20230114
  8. ACETAMINOPHEN [Concomitant]
     Active Substance: ACETAMINOPHEN
     Indication: Diabetes mellitus
     Route: 042
     Dates: start: 20230114, end: 20230114
  9. ACETAMINOPHEN [Concomitant]
     Active Substance: ACETAMINOPHEN
     Indication: Hypertension
     Route: 042
     Dates: start: 20230114, end: 20230114
  10. ACETAMINOPHEN [Concomitant]
     Active Substance: ACETAMINOPHEN
     Indication: Bone marrow transplant
     Route: 042
     Dates: start: 20230114, end: 20230114
  11. ACETAMINOPHEN [Concomitant]
     Active Substance: ACETAMINOPHEN
     Indication: COVID-19
     Route: 042
     Dates: start: 20230114, end: 20230114
  12. ACETAMINOPHEN [Concomitant]
     Active Substance: ACETAMINOPHEN
     Indication: Acute myeloid leukaemia
     Route: 042
     Dates: start: 20230116, end: 20230123
  13. ACETAMINOPHEN [Concomitant]
     Active Substance: ACETAMINOPHEN
     Indication: Chest pain
     Route: 042
     Dates: start: 20230116, end: 20230123
  14. ACETAMINOPHEN [Concomitant]
     Active Substance: ACETAMINOPHEN
     Indication: Cough variant asthma
     Route: 042
     Dates: start: 20230116, end: 20230123
  15. ACETAMINOPHEN [Concomitant]
     Active Substance: ACETAMINOPHEN
     Indication: Dehydration
     Route: 042
     Dates: start: 20230116, end: 20230123
  16. ACETAMINOPHEN [Concomitant]
     Active Substance: ACETAMINOPHEN
     Indication: Pyrexia
     Route: 042
     Dates: start: 20230116, end: 20230123
  17. ACETAMINOPHEN [Concomitant]
     Active Substance: ACETAMINOPHEN
     Indication: Dyspepsia
     Route: 042
     Dates: start: 20230116, end: 20230123
  18. ACETAMINOPHEN [Concomitant]
     Active Substance: ACETAMINOPHEN
     Indication: Diabetes mellitus
     Route: 042
     Dates: start: 20230116, end: 20230123
  19. ACETAMINOPHEN [Concomitant]
     Active Substance: ACETAMINOPHEN
     Indication: Hypertension
     Route: 042
     Dates: start: 20230116, end: 20230123
  20. ACETAMINOPHEN [Concomitant]
     Active Substance: ACETAMINOPHEN
     Indication: Bone marrow transplant
     Route: 042
     Dates: start: 20230116, end: 20230123
  21. ACETAMINOPHEN [Concomitant]
     Active Substance: ACETAMINOPHEN
     Indication: COVID-19
     Route: 042
     Dates: start: 20230116, end: 20230123
  22. ACETAMINOPHEN [Concomitant]
     Active Substance: ACETAMINOPHEN
     Indication: Acute myeloid leukaemia
     Route: 042
     Dates: start: 20230328, end: 20230330
  23. ACETAMINOPHEN [Concomitant]
     Active Substance: ACETAMINOPHEN
     Indication: Chest pain
     Route: 042
     Dates: start: 20230328, end: 20230330
  24. ACETAMINOPHEN [Concomitant]
     Active Substance: ACETAMINOPHEN
     Indication: Cough variant asthma
     Route: 042
     Dates: start: 20230328, end: 20230330
  25. ACETAMINOPHEN [Concomitant]
     Active Substance: ACETAMINOPHEN
     Indication: Dehydration
     Route: 042
     Dates: start: 20230328, end: 20230330
  26. ACETAMINOPHEN [Concomitant]
     Active Substance: ACETAMINOPHEN
     Indication: Pyrexia
     Route: 042
     Dates: start: 20230328, end: 20230330
  27. ACETAMINOPHEN [Concomitant]
     Active Substance: ACETAMINOPHEN
     Indication: Dyspepsia
     Route: 042
     Dates: start: 20230328, end: 20230330
  28. ACETAMINOPHEN [Concomitant]
     Active Substance: ACETAMINOPHEN
     Indication: Diabetes mellitus
     Route: 042
     Dates: start: 20230328, end: 20230330
  29. ACETAMINOPHEN [Concomitant]
     Active Substance: ACETAMINOPHEN
     Indication: Hypertension
     Route: 042
     Dates: start: 20230328, end: 20230330
  30. ACETAMINOPHEN [Concomitant]
     Active Substance: ACETAMINOPHEN
     Indication: Bone marrow transplant
     Route: 042
     Dates: start: 20230328, end: 20230330
  31. ACETAMINOPHEN [Concomitant]
     Active Substance: ACETAMINOPHEN
     Indication: COVID-19
     Route: 042
     Dates: start: 20230328, end: 20230330
  32. BUDESONIDE [Concomitant]
     Active Substance: BUDESONIDE
     Indication: Cough variant asthma
     Route: 055
     Dates: start: 20230114, end: 20230120
  33. BUDESONIDE [Concomitant]
     Active Substance: BUDESONIDE
     Indication: Cough variant asthma
     Route: 055
     Dates: start: 20230328, end: 20230328
  34. BUDESONIDE [Concomitant]
     Active Substance: BUDESONIDE
     Indication: Cough variant asthma
     Route: 048
     Dates: start: 20230329, end: 20230429
  35. PANTOPRAZOLE WITH SODIUM CHLORIDE 0.9% [Concomitant]
     Indication: Dyspepsia
     Route: 042
     Dates: start: 20230328, end: 20230329
  36. LACTATED RINGERS SOLUTION [Concomitant]
     Active Substance: CALCIUM CHLORIDE\POTASSIUM CHLORIDE\SODIUM CHLORIDE\SODIUM LACTATE
     Indication: Dehydration
     Route: 042
     Dates: start: 20230328, end: 20230329
  37. SODIUM CHLORIDE [Concomitant]
     Active Substance: SODIUM CHLORIDE
     Indication: Acute myeloid leukaemia
     Route: 055
     Dates: start: 20230116, end: 20230118
  38. SODIUM CHLORIDE [Concomitant]
     Active Substance: SODIUM CHLORIDE
     Indication: Chest pain
     Route: 055
     Dates: start: 20230116, end: 20230118
  39. SODIUM CHLORIDE [Concomitant]
     Active Substance: SODIUM CHLORIDE
     Indication: Cough variant asthma
     Route: 055
     Dates: start: 20230116, end: 20230118
  40. SODIUM CHLORIDE [Concomitant]
     Active Substance: SODIUM CHLORIDE
     Indication: Dehydration
     Route: 055
     Dates: start: 20230116, end: 20230118
  41. SODIUM CHLORIDE [Concomitant]
     Active Substance: SODIUM CHLORIDE
     Indication: Pyrexia
     Route: 055
     Dates: start: 20230116, end: 20230118
  42. SODIUM CHLORIDE [Concomitant]
     Active Substance: SODIUM CHLORIDE
     Indication: Dyspepsia
     Route: 055
     Dates: start: 20230116, end: 20230118
  43. SODIUM CHLORIDE [Concomitant]
     Active Substance: SODIUM CHLORIDE
     Indication: Diabetes mellitus
     Route: 055
     Dates: start: 20230116, end: 20230118
  44. SODIUM CHLORIDE [Concomitant]
     Active Substance: SODIUM CHLORIDE
     Indication: Hypertension
     Route: 055
     Dates: start: 20230116, end: 20230118
  45. SODIUM CHLORIDE [Concomitant]
     Active Substance: SODIUM CHLORIDE
     Indication: Bone marrow transplant
     Route: 055
     Dates: start: 20230116, end: 20230118
  46. SODIUM CHLORIDE [Concomitant]
     Active Substance: SODIUM CHLORIDE
     Indication: COVID-19
     Route: 055
     Dates: start: 20230116, end: 20230118
  47. SODIUM CHLORIDE [Concomitant]
     Active Substance: SODIUM CHLORIDE
     Indication: Cough
     Route: 055
     Dates: start: 20230116, end: 20230118
  48. SODIUM CHLORIDE [Concomitant]
     Active Substance: SODIUM CHLORIDE
     Indication: Acute myeloid leukaemia
     Route: 055
     Dates: start: 20230122, end: 20230124
  49. SODIUM CHLORIDE [Concomitant]
     Active Substance: SODIUM CHLORIDE
     Indication: Chest pain
     Route: 055
     Dates: start: 20230122, end: 20230124
  50. SODIUM CHLORIDE [Concomitant]
     Active Substance: SODIUM CHLORIDE
     Indication: Cough variant asthma
     Route: 055
     Dates: start: 20230122, end: 20230124
  51. SODIUM CHLORIDE [Concomitant]
     Active Substance: SODIUM CHLORIDE
     Indication: Dehydration
     Route: 055
     Dates: start: 20230122, end: 20230124
  52. SODIUM CHLORIDE [Concomitant]
     Active Substance: SODIUM CHLORIDE
     Indication: Pyrexia
     Route: 055
     Dates: start: 20230122, end: 20230124
  53. SODIUM CHLORIDE [Concomitant]
     Active Substance: SODIUM CHLORIDE
     Indication: Dyspepsia
     Route: 055
     Dates: start: 20230122, end: 20230124
  54. SODIUM CHLORIDE [Concomitant]
     Active Substance: SODIUM CHLORIDE
     Indication: Diabetes mellitus
     Route: 055
     Dates: start: 20230122, end: 20230124
  55. SODIUM CHLORIDE [Concomitant]
     Active Substance: SODIUM CHLORIDE
     Indication: Hypertension
     Route: 055
     Dates: start: 20230122, end: 20230124
  56. SODIUM CHLORIDE [Concomitant]
     Active Substance: SODIUM CHLORIDE
     Indication: Bone marrow transplant
     Route: 055
     Dates: start: 20230122, end: 20230124
  57. SODIUM CHLORIDE [Concomitant]
     Active Substance: SODIUM CHLORIDE
     Indication: COVID-19
     Route: 055
     Dates: start: 20230122, end: 20230124
  58. SODIUM CHLORIDE [Concomitant]
     Active Substance: SODIUM CHLORIDE
     Indication: Cough
     Route: 055
     Dates: start: 20230122, end: 20230124
  59. SODIUM CHLORIDE [Concomitant]
     Active Substance: SODIUM CHLORIDE
     Indication: Acute myeloid leukaemia
     Route: 055
     Dates: start: 20230328, end: 20230330
  60. SODIUM CHLORIDE [Concomitant]
     Active Substance: SODIUM CHLORIDE
     Indication: Chest pain
     Route: 055
     Dates: start: 20230328, end: 20230330
  61. SODIUM CHLORIDE [Concomitant]
     Active Substance: SODIUM CHLORIDE
     Indication: Cough variant asthma
     Route: 055
     Dates: start: 20230328, end: 20230330
  62. SODIUM CHLORIDE [Concomitant]
     Active Substance: SODIUM CHLORIDE
     Indication: Dehydration
     Route: 055
     Dates: start: 20230328, end: 20230330
  63. SODIUM CHLORIDE [Concomitant]
     Active Substance: SODIUM CHLORIDE
     Indication: Pyrexia
     Route: 055
     Dates: start: 20230328, end: 20230330
  64. SODIUM CHLORIDE [Concomitant]
     Active Substance: SODIUM CHLORIDE
     Indication: Dyspepsia
     Route: 055
     Dates: start: 20230328, end: 20230330
  65. SODIUM CHLORIDE [Concomitant]
     Active Substance: SODIUM CHLORIDE
     Indication: Diabetes mellitus
     Route: 055
     Dates: start: 20230328, end: 20230330
  66. SODIUM CHLORIDE [Concomitant]
     Active Substance: SODIUM CHLORIDE
     Indication: Hypertension
     Route: 055
     Dates: start: 20230328, end: 20230330
  67. SODIUM CHLORIDE [Concomitant]
     Active Substance: SODIUM CHLORIDE
     Indication: Bone marrow transplant
     Route: 055
     Dates: start: 20230328, end: 20230330
  68. SODIUM CHLORIDE [Concomitant]
     Active Substance: SODIUM CHLORIDE
     Indication: COVID-19
     Route: 055
     Dates: start: 20230328, end: 20230330
  69. SODIUM CHLORIDE [Concomitant]
     Active Substance: SODIUM CHLORIDE
     Indication: Cough
     Route: 055
     Dates: start: 20230328, end: 20230330
  70. ALBUTEROL [Concomitant]
     Active Substance: ALBUTEROL
     Indication: Cough variant asthma
     Route: 055
     Dates: start: 20230114, end: 20230115
  71. ALBUTEROL [Concomitant]
     Active Substance: ALBUTEROL
     Indication: Asthma
     Route: 055
     Dates: start: 20230114, end: 20230115
  72. ALBUTEROL [Concomitant]
     Active Substance: ALBUTEROL
     Indication: Cough variant asthma
     Route: 055
     Dates: start: 20230114, end: 20230122
  73. ALBUTEROL [Concomitant]
     Active Substance: ALBUTEROL
     Indication: Asthma
     Route: 055
     Dates: start: 20230114, end: 20230122
  74. ALBUTEROL [Concomitant]
     Active Substance: ALBUTEROL
     Indication: Cough variant asthma
     Route: 055
     Dates: start: 20230122, end: 20230126
  75. ALBUTEROL [Concomitant]
     Active Substance: ALBUTEROL
     Indication: Asthma
     Route: 055
     Dates: start: 20230122, end: 20230126
  76. ALBUTEROL [Concomitant]
     Active Substance: ALBUTEROL
     Indication: Cough variant asthma
     Route: 055
     Dates: start: 20230328, end: 20230329
  77. ALBUTEROL [Concomitant]
     Active Substance: ALBUTEROL
     Indication: Asthma
     Route: 055
     Dates: start: 20230328, end: 20230329

REACTIONS (1)
  - COVID-19 pneumonia [Recovered/Resolved]

NARRATIVE: CASE EVENT DATE: 20230329
